FAERS Safety Report 12299914 (Version 1)
Quarter: 2016Q2

REPORT INFORMATION
  Report Type: Spontaneous
  Country: US (occurrence: BR)
  Receive Date: 20160425
  Receipt Date: 20160425
  Transmission Date: 20160815
  Serious: Yes (Other)
  Sender: FDA-Public Use
  Company Number: BR-WARNER CHILCOTT, LLC-1050950

PATIENT
  Age: 56 Year
  Sex: Female
  Weight: 72.18 kg

DRUGS (2)
  1. ACTONEL [Suspect]
     Active Substance: RISEDRONATE SODIUM
     Indication: OSTEOPOROSIS
     Route: 048
     Dates: start: 20160222, end: 20160222
  2. EUTIROX [Concomitant]
     Active Substance: LEVOTHYROXINE SODIUM
     Dates: start: 20060303

REACTIONS (2)
  - Angina pectoris [Recovering/Resolving]
  - Chest discomfort [Recovering/Resolving]

NARRATIVE: CASE EVENT DATE: 2016
